FAERS Safety Report 6780005-6 (Version None)
Quarter: 2010Q2

REPORT INFORMATION
  Report Type: 
  Country: None (occurrence: None)
  Receive Date: 20100618
  Receipt Date: 20100611
  Transmission Date: 20101027
  Serious: Yes (Other)
  Sender: FDA-Public Use
  Company Number: US-JNJFOC-20100501156

PATIENT
  Sex: Male

DRUGS (5)
  1. CHILDREN'S TYLENOL SUSPENSION [Suspect]
  2. CHILDREN'S TYLENOL SUSPENSION [Suspect]
     Indication: MALAISE
  3. CHILDREN'S MOTRIN [Suspect]
  4. CHILDREN'S MOTRIN [Suspect]
     Indication: MALAISE
  5. BENADRYL [Suspect]
     Indication: MALAISE

REACTIONS (3)
  - ABNORMAL BEHAVIOUR [None]
  - DYSPNOEA [None]
  - PRODUCT QUALITY ISSUE [None]
